FAERS Safety Report 9086314 (Version 3)
Quarter: 2014Q1

REPORT INFORMATION
  Report Type: Spontaneous
  Country: US (occurrence: US)
  Receive Date: 20130131
  Receipt Date: 20140103
  Transmission Date: 20141002
  Serious: Yes (Hospitalization)
  Sender: FDA-Public Use
  Company Number: US-BAYER-2013-010691

PATIENT
  Age: 48 Year
  Sex: Female
  Weight: 99.77 kg

DRUGS (8)
  1. YASMIN [Suspect]
  2. OCELLA [Suspect]
  3. YAZ [Suspect]
  4. ADVAIR DISKUS [Concomitant]
     Dosage: 250/50 MCG
     Dates: start: 20100513, end: 20100727
  5. ALBUTEROL [Concomitant]
     Route: 045
  6. LEVOTHYROXINE [Concomitant]
     Dosage: 75MCG
     Dates: start: 20100519, end: 20100830
  7. ALLEGRA [Concomitant]
  8. SINGULAIR [Concomitant]

REACTIONS (5)
  - Pulmonary embolism [None]
  - Deep vein thrombosis [None]
  - Injury [None]
  - Pain [None]
  - Pain [None]
